FAERS Safety Report 21681364 (Version 1)
Quarter: 2022Q4

REPORT INFORMATION
  Report Type: Spontaneous
  Country: US (occurrence: None)
  Receive Date: 20221205
  Receipt Date: 20221205
  Transmission Date: 20230112
  Serious: No
  Sender: FDA-Public Use
  Company Number: 2022A372945

PATIENT

DRUGS (1)
  1. BYDUREON BCISE [Suspect]
     Active Substance: EXENATIDE
     Route: 058

REACTIONS (5)
  - Incorrect dose administered by device [Unknown]
  - Injection site mass [Unknown]
  - Injection site bruising [Unknown]
  - Wrong technique in device usage process [Unknown]
  - Needle issue [Unknown]
